FAERS Safety Report 5643982-2 (Version None)
Quarter: 2008Q1

REPORT INFORMATION
  Report Type: 
  Country: None (occurrence: None)
  Receive Date: 20080131
  Receipt Date: 20070720
  Transmission Date: 20080703
  Serious: Yes (Other)
  Sender: FDA-Public Use
  Company Number: US-JNJFOC-20070705921

PATIENT
  Sex: Male

DRUGS (1)
  1. SUDAFED 24 HOUR [Suspect]
     Indication: HEADACHE
     Dosage: 240 MG, 4 IN 1 DAY, ORAL
     Route: 048
     Dates: start: 20070701, end: 20070701

REACTIONS (1)
  - OVERDOSE [None]
